FAERS Safety Report 9310783 (Version 2)
Quarter: 2013Q2

REPORT INFORMATION
  Report Type: Spontaneous
  Country: US (occurrence: US)
  Receive Date: 20130528
  Receipt Date: 20130529
  Transmission Date: 20140414
  Serious: Yes (Death)
  Sender: FDA-Public Use
  Company Number: US-PFIZER INC-2008153574

PATIENT
  Age: 57 Year
  Sex: Female

DRUGS (6)
  1. SERTRALINE HCL [Suspect]
     Dosage: UNK
     Route: 048
  2. ZOLPIDEM TARTRATE [Suspect]
     Dosage: UNK
     Route: 048
  3. BUSPIRONE [Suspect]
     Dosage: UNK
     Route: 048
  4. VALPROIC ACID [Suspect]
     Dosage: UNK
     Route: 048
  5. DIPHENHYDRAMINE [Suspect]
     Dosage: UNK
     Route: 048
  6. AMLODIPINE [Suspect]
     Dosage: UNK
     Route: 048

REACTIONS (1)
  - Completed suicide [Fatal]
